FAERS Safety Report 6044995-1 (Version None)
Quarter: 2009Q1

REPORT INFORMATION
  Report Type: 
  Country: None (occurrence: None)
  Receive Date: 20090116
  Receipt Date: 20090116
  Transmission Date: 20090719
  Serious: Yes (Life-Threatening)
  Sender: FDA-Public Use
  Company Number: None

PATIENT
  Age: 63 Year
  Sex: Female
  Weight: 58.9676 kg

DRUGS (3)
  1. CELEBREX [Suspect]
     Indication: PAIN IN EXTREMITY
     Dosage: HAVE FORGOTTEN 2X'S PER DAY PO
     Route: 048
     Dates: start: 20070415, end: 20070420
  2. GENERIC VERSION UNKNOWN UNKNOWN [Suspect]
     Indication: HYPOAESTHESIA
  3. PAXIL [Concomitant]

REACTIONS (8)
  - CARDIAC DISORDER [None]
  - CONFUSIONAL STATE [None]
  - DIZZINESS [None]
  - DYSARTHRIA [None]
  - FEAR [None]
  - FEELING OF BODY TEMPERATURE CHANGE [None]
  - HEART INJURY [None]
  - MUSCLE SPASMS [None]
